FAERS Safety Report 5748594-8 (Version None)
Quarter: 2008Q2

REPORT INFORMATION
  Report Type: 
  Country: None (occurrence: None)
  Receive Date: 20080523
  Receipt Date: 20080513
  Transmission Date: 20081010
  Serious: Yes (Other)
  Sender: FDA-Public Use
  Company Number: US-PFIZER INC-2008042640

PATIENT
  Sex: Male
  Weight: 59 kg

DRUGS (1)
  1. CHANTIX [Suspect]
     Indication: SMOKING CESSATION THERAPY
     Dates: start: 20071118, end: 20071101

REACTIONS (2)
  - ANXIETY [None]
  - CONDITION AGGRAVATED [None]
